FAERS Safety Report 15098598 (Version 1)
Quarter: 2018Q3

REPORT INFORMATION
  Report Type: Report from Study
  Country: IT (occurrence: IT)
  Receive Date: 20180702
  Receipt Date: 20180702
  Transmission Date: 20181010
  Serious: Yes (Hospitalization)
  Sender: FDA-Public Use
  Company Number: IT-TEVA-2018-IT-918349

PATIENT
  Age: 83 Year
  Sex: Female

DRUGS (13)
  1. FOLINA 5 MG CAPSULE MOLLI [Concomitant]
     Route: 048
  2. LEXOTAN 1,5 MG CAPSULE RIGIDE [Concomitant]
     Active Substance: BROMAZEPAM
     Indication: ANXIETY
     Route: 048
  3. TRIATEC 10 MG COMPRESSE [Concomitant]
     Indication: HYPERTENSION
     Route: 048
  4. LASIX [Concomitant]
     Active Substance: FUROSEMIDE
     Indication: HYPERTENSION
     Route: 048
  5. LANSOX 30 MG CAPSULE RIGIDE [Concomitant]
     Route: 048
  6. METFORMIN HYDROCHLORIDE. [Suspect]
     Active Substance: METFORMIN HYDROCHLORIDE
     Indication: TYPE 2 DIABETES MELLITUS
     Dosage: 2500 MILLIGRAM DAILY;
     Route: 048
  7. DIFOSFONAL 400 MG CAPSULE RIGIDE [Concomitant]
     Route: 048
  8. CARDIOASPIRIN 100 MG COMPRESSE GASTRORESISTENTI [Concomitant]
     Active Substance: ASPIRIN
     Indication: THROMBOSIS PROPHYLAXIS
     Route: 048
  9. LYRICA [Concomitant]
     Active Substance: PREGABALIN
     Route: 048
  10. SEREUPIN 20 MG COMPRESSE RIVESTITE CON FILM [Concomitant]
     Indication: DEPRESSION
     Route: 048
  11. ALLOPURINOL. [Concomitant]
     Active Substance: ALLOPURINOL
     Route: 048
  12. TORVAST 20 MG COMPRESSE RIVESTITE CON FILM [Concomitant]
     Indication: DYSLIPIDAEMIA
     Route: 048
  13. METOPROLOL TARTRATE. [Concomitant]
     Active Substance: METOPROLOL TARTRATE
     Indication: HYPERTENSION
     Route: 048

REACTIONS (2)
  - Acute kidney injury [Unknown]
  - Lactic acidosis [Unknown]

NARRATIVE: CASE EVENT DATE: 20180312
